FAERS Safety Report 7434892-9 (Version None)
Quarter: 2011Q2

REPORT INFORMATION
  Report Type: 
  Country: None (occurrence: None)
  Receive Date: 20110425
  Receipt Date: 20110414
  Transmission Date: 20111010
  Serious: Yes (Hospitalization)
  Sender: FDA-Public Use
  Company Number: AT-ASTRAZENECA-2011SE21714

PATIENT
  Age: 82 Year
  Sex: Female
  Weight: 60 kg

DRUGS (2)
  1. FENTORON [Interacting]
     Indication: PAIN
     Dosage: 1 TIMES, EVERY THURSDAY AND EVERY SUNDAY.
     Route: 065
     Dates: start: 20110322, end: 20110329
  2. ACECOMB [Suspect]
     Indication: HYPERTENSION
     Route: 048
     Dates: start: 20040101, end: 20110329

REACTIONS (2)
  - SWOLLEN TONGUE [None]
  - DRUG INTERACTION [None]
